FAERS Safety Report 19744251 (Version 4)
Quarter: 2021Q4

REPORT INFORMATION
  Report Type: Spontaneous
  Country: DK (occurrence: DK)
  Receive Date: 20210825
  Receipt Date: 20211004
  Transmission Date: 20220303
  Serious: Yes (Death, Hospitalization, Other)
  Sender: FDA-Public Use
  Company Number: DK-ACCORD-218959

PATIENT
  Age: 75 Year
  Sex: Female
  Weight: 59 kg

DRUGS (50)
  1. OXALIPLATIN [Suspect]
     Active Substance: OXALIPLATIN
     Indication: Diffuse large B-cell lymphoma stage IV
     Dosage: 169 MILLIGRAM, ONCE (SINGLE)
     Route: 042
     Dates: start: 20201130, end: 20201130
  2. OXALIPLATIN [Suspect]
     Active Substance: OXALIPLATIN
     Dosage: 169 MILLIGRAM, ONCE (SINGLE)
     Route: 042
     Dates: start: 20201214, end: 20201214
  3. OXALIPLATIN [Suspect]
     Active Substance: OXALIPLATIN
     Dosage: 162 MILLIGRAM, ONCE (SINGLE)
     Route: 042
     Dates: start: 20210106, end: 20210106
  4. OXALIPLATIN [Suspect]
     Active Substance: OXALIPLATIN
     Dosage: 162 MILLIGRAM, ONCE (SINGLE)
     Route: 042
     Dates: start: 20210203
  5. GEMCITABINE [Suspect]
     Active Substance: GEMCITABINE
     Indication: Diffuse large B-cell lymphoma stage IV
     Dosage: 1690 MILLIGRAM, ONCE
     Route: 042
     Dates: start: 20201130, end: 20201130
  6. GEMCITABINE [Suspect]
     Active Substance: GEMCITABINE
     Dosage: 1690 MILLIGRAM, ONCE
     Route: 042
     Dates: start: 20201214, end: 20201214
  7. GEMCITABINE [Suspect]
     Active Substance: GEMCITABINE
     Dosage: 1620 MILLIGRAM, ONCE
     Route: 042
     Dates: start: 20210106, end: 20210106
  8. GEMCITABINE [Suspect]
     Active Substance: GEMCITABINE
     Dosage: 1619 MILLIGRAM, ONCE
     Route: 042
     Dates: start: 20210203
  9. GEMCITABINE [Suspect]
     Active Substance: GEMCITABINE
     Dosage: 1690 MILLIGRAM, ONCE
     Route: 042
     Dates: start: 20210203
  10. GEMCITABINE [Suspect]
     Active Substance: GEMCITABINE
     Dosage: 1620 MILLIGRAM, ONCE
     Route: 042
     Dates: start: 20210203
  11. PANTOPRAZOLE [Concomitant]
     Active Substance: PANTOPRAZOLE
     Dosage: UNK
     Dates: start: 20180903
  12. FUROSEMIDE [Concomitant]
     Active Substance: FUROSEMIDE
     Dosage: UNK
     Dates: start: 20201216
  13. ALENDRONATE SODIUM [Concomitant]
     Active Substance: ALENDRONATE SODIUM
     Dosage: UNK
     Dates: start: 20150602, end: 20210226
  14. FOSCARNET [Concomitant]
     Active Substance: FOSCARNET
     Dosage: UNK
     Dates: start: 20210118, end: 20210121
  15. POTASSIUM CHLORIDE [Concomitant]
     Active Substance: POTASSIUM CHLORIDE
     Dosage: UNK
     Dates: start: 20181011
  16. PIPERACILLIN AND TAZOBACTAM [Concomitant]
     Active Substance: PIPERACILLIN SODIUM\TAZOBACTAM SODIUM
     Dosage: 12/1.5 G, CONTINUOUS
     Route: 042
     Dates: start: 20210111, end: 20210226
  17. PIPERACILLIN AND TAZOBACTAM [Concomitant]
     Active Substance: PIPERACILLIN SODIUM\TAZOBACTAM SODIUM
     Dosage: UNK
     Dates: start: 20210111, end: 20210120
  18. PIPERACILLIN AND TAZOBACTAM [Concomitant]
     Active Substance: PIPERACILLIN SODIUM\TAZOBACTAM SODIUM
     Dosage: 12/1.5 G, CONTINUOUS
     Route: 042
     Dates: start: 20210130, end: 20210226
  19. DIAZEPAM [Concomitant]
     Active Substance: DIAZEPAM
     Dosage: UNK
     Dates: start: 20200710
  20. DAPTOMYCIN [Concomitant]
     Active Substance: DAPTOMYCIN
     Dosage: UNK
     Dates: start: 20210111, end: 20210120
  21. OXYCODONE HYDROCHLORIDE [Concomitant]
     Active Substance: OXYCODONE HYDROCHLORIDE
     Dosage: UNK
     Dates: start: 20201122
  22. VALGANCICLOVIR [Concomitant]
     Active Substance: VALGANCICLOVIR
     Dosage: UNK
     Dates: start: 20210122
  23. GABAPENTIN [Concomitant]
     Active Substance: GABAPENTIN
     Dosage: UNK
     Dates: start: 20190309
  24. GANCICLOVIR [Concomitant]
     Active Substance: GANCICLOVIR
     Dosage: UNK
     Dates: start: 20210114, end: 20210118
  25. DEXAMETHASONE [Concomitant]
     Active Substance: DEXAMETHASONE
     Dosage: UNK
     Dates: start: 20210113, end: 20210117
  26. MIRTAZAPINE [Concomitant]
     Active Substance: MIRTAZAPINE
     Dosage: UNK
     Dates: start: 20180621
  27. LAMOTRIGINE [Concomitant]
     Active Substance: LAMOTRIGINE
     Dosage: UNK
     Dates: start: 20150702
  28. LINEZOLID [Concomitant]
     Active Substance: LINEZOLID
     Dosage: UNK
     Dates: start: 20210111, end: 20210120
  29. VANCOMYCIN [Concomitant]
     Active Substance: VANCOMYCIN
     Dosage: UNK
     Dates: start: 20210106, end: 20210116
  30. VANCOMYCIN [Concomitant]
     Active Substance: VANCOMYCIN
     Dosage: UNK
     Dates: start: 20210106, end: 20210228
  31. MAGNESIUM [Concomitant]
     Active Substance: MAGNESIUM
     Dosage: UNK
     Dates: start: 20210103
  32. POLYETHYLENE GLYCOLS [Concomitant]
     Active Substance: POLYETHYLENE GLYCOLS
     Dosage: UNK
     Dates: start: 20190216
  33. SODIUM PICOSULFATE [Concomitant]
     Active Substance: SODIUM PICOSULFATE
     Dosage: UNK
     Dates: start: 20200210
  34. SODIUM PICOSULFATE [Concomitant]
     Active Substance: SODIUM PICOSULFATE
     Dosage: UNK
     Dates: start: 20210210, end: 20210226
  35. GENTAMICIN [Concomitant]
     Active Substance: GENTAMICIN
     Dosage: 280 MILLIGRAM, QD
     Route: 042
     Dates: start: 20210111, end: 20210121
  36. GENTAMICIN [Concomitant]
     Active Substance: GENTAMICIN
     Dosage: UNK
     Dates: start: 20210111, end: 20210121
  37. GENTAMICIN [Concomitant]
     Active Substance: GENTAMICIN
     Dosage: 280 MILLIGRAM, QD
     Route: 042
     Dates: start: 20210209, end: 20210224
  38. SULFAMETHOXAZOLE\TRIMETHOPRIM [Concomitant]
     Active Substance: SULFAMETHOXAZOLE\TRIMETHOPRIM
     Dosage: UNK
     Dates: start: 20210106
  39. FLUCONAZOLE [Concomitant]
     Active Substance: FLUCONAZOLE
     Dosage: UNK
     Dates: start: 20201205
  40. CETIRIZINE HYDROCHLORIDE [Concomitant]
     Active Substance: CETIRIZINE HYDROCHLORIDE
     Dosage: UNK
     Dates: start: 20201130, end: 20210203
  41. FILGRASTIM [Concomitant]
     Active Substance: FILGRASTIM
     Dosage: UNK
     Dates: start: 20210210
  42. CASPOFUNGIN ACETATE [Concomitant]
     Active Substance: CASPOFUNGIN ACETATE
     Dosage: UNK
     Dates: start: 20210222, end: 20210226
  43. METRONIDAZOLE [Concomitant]
     Active Substance: METRONIDAZOLE
     Dosage: UNK
     Dates: start: 20210222, end: 20210226
  44. PREDNISOLONE [Concomitant]
     Active Substance: PREDNISOLONE
     Dosage: UNK
     Dates: start: 20201130, end: 20210209
  45. ACYCLOVIR SODIUM [Concomitant]
     Active Substance: ACYCLOVIR SODIUM
     Dosage: UNK
     Dates: start: 20210211, end: 20210217
  46. ACETAMINOPHEN [Concomitant]
     Active Substance: ACETAMINOPHEN
     Dosage: UNK
  47. VALACYCLOVIR HYDROCHLORIDE [Concomitant]
     Active Substance: VALACYCLOVIR HYDROCHLORIDE
     Dosage: UNK
     Dates: start: 20210205, end: 20210210
  48. COTRIMOXAZOLE [Concomitant]
     Active Substance: SULFAMETHOXAZOLE\TRIMETHOPRIM
     Dosage: UNK
     Dates: start: 20210106
  49. ACETAMINOPHEN [Concomitant]
     Active Substance: ACETAMINOPHEN
     Dosage: UNK
     Dates: start: 20201130, end: 20210203
  50. HUMAN IMMUNOGLOBULIN G [Concomitant]
     Active Substance: HUMAN IMMUNOGLOBULIN G
     Dosage: UNK
     Dates: start: 20210213, end: 20210213

REACTIONS (4)
  - Bronchopulmonary aspergillosis [Fatal]
  - Immune effector cell-associated neurotoxicity syndrome [Recovered/Resolved]
  - Pyrexia [Recovered/Resolved]
  - Off label use [Unknown]

NARRATIVE: CASE EVENT DATE: 20210130
